FAERS Safety Report 7949542-2 (Version None)
Quarter: 2011Q4

REPORT INFORMATION
  Report Type: 
  Country: None (occurrence: None)
  Receive Date: 20111130
  Receipt Date: 20111121
  Transmission Date: 20120403
  Serious: Yes (Hospitalization)
  Sender: FDA-Public Use
  Company Number: US-BAYER-2011-098225

PATIENT
  Age: 32 Year
  Sex: Female
  Weight: 88 kg

DRUGS (7)
  1. YASMIN [Suspect]
     Indication: CONTRACEPTION
     Dosage: UNK UNK, QD
     Route: 048
     Dates: start: 20050101, end: 20080101
  2. YAZ [Suspect]
     Indication: CONTRACEPTION
     Dosage: UNK UNK, QD
     Route: 048
     Dates: start: 20050101, end: 20080101
  3. NEXIUM [Concomitant]
     Route: 048
  4. YAZ [Suspect]
     Indication: HORMONE THERAPY
  5. XANAX [Concomitant]
     Dosage: UNK UNK, PRN
     Route: 048
     Dates: start: 20040101
  6. YASMIN [Suspect]
     Indication: HORMONE THERAPY
  7. NAPROXEN (ALEVE) [Concomitant]
     Dosage: UNK UNK, PRN
     Route: 048
     Dates: start: 20000101

REACTIONS (7)
  - GALLBLADDER INJURY [None]
  - IATROGENIC INJURY [None]
  - INJURY [None]
  - CHOLECYSTITIS ACUTE [None]
  - BILE DUCT OBSTRUCTION [None]
  - PAIN [None]
  - CHOLELITHIASIS [None]
